FAERS Safety Report 21243694 (Version 1)
Quarter: 2022Q3

REPORT INFORMATION
  Report Type: Spontaneous
  Country: ES (occurrence: ES)
  Receive Date: 20220823
  Receipt Date: 20220823
  Transmission Date: 20221027
  Serious: Yes (Hospitalization, Other)
  Sender: FDA-Public Use
  Company Number: ES-PFIZER INC-202201022069

PATIENT
  Age: 56 Year
  Sex: Female

DRUGS (2)
  1. GEMCITABINE HYDROCHLORIDE [Suspect]
     Active Substance: GEMCITABINE HYDROCHLORIDE
     Indication: Pancreatic carcinoma
     Dosage: UNK, CYCLIC
  2. PACLITAXEL [Suspect]
     Active Substance: PACLITAXEL
     Indication: Pancreatic carcinoma
     Dosage: UNK, CYCLIC

REACTIONS (3)
  - Thrombotic microangiopathy [Recovered/Resolved]
  - Acute kidney injury [Recovered/Resolved]
  - Microangiopathic haemolytic anaemia [Recovered/Resolved]
